FAERS Safety Report 19665208 (Version 2)
Quarter: 2021Q3

REPORT INFORMATION
  Report Type: Spontaneous
  Country: US (occurrence: US)
  Receive Date: 20210805
  Receipt Date: 20210805
  Transmission Date: 20211014
  Serious: No
  Sender: FDA-Public Use
  Company Number: US-ROCHE-2803781

PATIENT
  Sex: Female

DRUGS (1)
  1. GAVRETO [Suspect]
     Active Substance: PRALSETINIB
     Indication: LUNG NEOPLASM MALIGNANT
     Dosage: REPORTED TAKING 200 MG
     Route: 048
     Dates: start: 20210308

REACTIONS (3)
  - Abdominal pain [Unknown]
  - Product prescribing error [Unknown]
  - Faeces discoloured [Unknown]
